FAERS Safety Report 7156626-8 (Version None)
Quarter: 2010Q4

REPORT INFORMATION
  Report Type: 
  Country: None (occurrence: None)
  Receive Date: 20101214
  Receipt Date: 20091216
  Transmission Date: 20110411
  Serious: No
  Sender: FDA-Public Use
  Company Number: US-ASTRAZENECA-2009SE15152

PATIENT
  Age: 50 Year
  Sex: Female
  Weight: 108.4 kg

DRUGS (2)
  1. CRESTOR [Suspect]
     Indication: DYSLIPIDAEMIA
     Route: 048
     Dates: start: 20090323
  2. TRILIPIX [Suspect]
     Indication: HYPERTRIGLYCERIDAEMIA
     Route: 048
     Dates: start: 20090622, end: 20090921

REACTIONS (3)
  - GLOMERULAR FILTRATION RATE DECREASED [None]
  - GLOMERULAR FILTRATION RATE INCREASED [None]
  - LIPIDS ABNORMAL [None]
